FAERS Safety Report 12543178 (Version 3)
Quarter: 2016Q3

REPORT INFORMATION
  Report Type: Report from Study
  Country: CA (occurrence: CA)
  Receive Date: 20160711
  Receipt Date: 20160726
  Transmission Date: 20161109
  Serious: Yes (Hospitalization)
  Sender: FDA-Public Use
  Company Number: CA-ROCHE-1774016

PATIENT
  Age: 54 Year
  Sex: Male

DRUGS (8)
  1. HYDROXYCHLOROQUINE [Concomitant]
     Active Substance: HYDROXYCHLOROQUINE
  2. RAMIPRIL. [Concomitant]
     Active Substance: RAMIPRIL
  3. DIPHENHYDRAMINE HCL [Concomitant]
     Active Substance: DIPHENHYDRAMINE HYDROCHLORIDE
     Indication: PREMEDICATION
     Route: 048
     Dates: start: 20160609, end: 20160623
  4. METHOTREXATE. [Concomitant]
     Active Substance: METHOTREXATE
  5. PREDNISONE. [Concomitant]
     Active Substance: PREDNISONE
     Route: 065
  6. METHYLPREDNISOLONE. [Concomitant]
     Active Substance: METHYLPREDNISOLONE
     Indication: PREMEDICATION
     Route: 042
     Dates: start: 20160609, end: 20160623
  7. RITUXAN [Suspect]
     Active Substance: RITUXIMAB
     Indication: AUTOIMMUNE NEUTROPENIA
     Dosage: LAST DOSE: 23/JUN/2016
     Route: 042
     Dates: start: 20160609, end: 20160623
  8. ACETAMINOPHEN. [Concomitant]
     Active Substance: ACETAMINOPHEN
     Indication: PREMEDICATION
     Route: 048
     Dates: start: 20160609, end: 20160623

REACTIONS (16)
  - Palatal swelling [Not Recovered/Not Resolved]
  - Infusion related reaction [Unknown]
  - Lip pain [Not Recovered/Not Resolved]
  - Lip swelling [Not Recovered/Not Resolved]
  - Local swelling [Not Recovered/Not Resolved]
  - Sinus congestion [Not Recovered/Not Resolved]
  - Lymphadenitis [Unknown]
  - Nasal oedema [Not Recovered/Not Resolved]
  - Neck pain [Not Recovered/Not Resolved]
  - Urticaria [Not Recovered/Not Resolved]
  - Ear swelling [Not Recovered/Not Resolved]
  - Heart rate increased [Unknown]
  - Paraesthesia [Recovered/Resolved]
  - Rhinalgia [Not Recovered/Not Resolved]
  - Ear pain [Not Recovered/Not Resolved]
  - Pyrexia [Unknown]

NARRATIVE: CASE EVENT DATE: 20160610
